FAERS Safety Report 17826439 (Version 1)
Quarter: 2020Q2

REPORT INFORMATION
  Report Type: Spontaneous
  Country: US (occurrence: US)
  Receive Date: 20200526
  Receipt Date: 20200526
  Transmission Date: 20200714
  Serious: Yes (Other)
  Sender: FDA-Public Use
  Company Number: US-NOVOPROD-729309

PATIENT
  Age: 73 Year
  Sex: Female

DRUGS (2)
  1. HUMALOG [Suspect]
     Active Substance: INSULIN LISPRO
     Indication: TYPE 2 DIABETES MELLITUS
     Dosage: SLIDING SCALE
     Route: 058
  2. TRESIBA [Suspect]
     Active Substance: INSULIN DEGLUDEC
     Indication: TYPE 2 DIABETES MELLITUS
     Dosage: 72 IU, BID (AM AND PM)
     Route: 058

REACTIONS (6)
  - Amnesia [Unknown]
  - Fall [Unknown]
  - Diabetic retinopathy [Unknown]
  - Ocular hyperaemia [Unknown]
  - Off label use [Unknown]
  - Myopia [Unknown]

NARRATIVE: CASE EVENT DATE: 202003
